FAERS Safety Report 5393517-7 (Version None)
Quarter: 2007Q3

REPORT INFORMATION
  Report Type: 
  Country: None (occurrence: None)
  Receive Date: 20070723
  Receipt Date: 20060725
  Transmission Date: 20080115
  Serious: No
  Sender: FDA-Public Use
  Company Number: A0613488A

PATIENT
  Age: 83 Year
  Sex: Female

DRUGS (3)
  1. AVANDIA [Suspect]
     Dosage: 4MG TWICE PER DAY
     Route: 048
  2. METFORMIN HCL [Concomitant]
  3. CLOBETASOL PROPIONATE [Concomitant]

REACTIONS (2)
  - EXPIRED DRUG ADMINISTERED [None]
  - PRURITUS GENERALISED [None]
